FAERS Safety Report 6999806-4 (Version None)
Quarter: 2010Q3

REPORT INFORMATION
  Report Type: 
  Country: None (occurrence: None)
  Receive Date: 20100920
  Receipt Date: 20100914
  Transmission Date: 20110219
  Serious: Yes (Other)
  Sender: FDA-Public Use
  Company Number: FR-BRISTOL-MYERS SQUIBB COMPANY-15288400

PATIENT
  Age: 40 Year
  Sex: Male

DRUGS (11)
  1. ABILIFY [Suspect]
     Indication: PSYCHOTIC DISORDER
     Dates: start: 20100907
  2. ABILIFY [Suspect]
     Indication: ABULIA
     Dates: start: 20100907
  3. ABILIFY [Suspect]
     Indication: PHOBIA
     Dates: start: 20100907
  4. RISPERDAL [Suspect]
  5. TERCIAN [Suspect]
  6. TRUVADA [Concomitant]
     Indication: HIV TEST POSITIVE
     Dosage: 1 DF = TRUVADA 200/245 MG
  7. NORVIR [Concomitant]
     Indication: HIV TEST POSITIVE
  8. REYATAZ [Concomitant]
     Indication: HIV TEST POSITIVE
  9. EFFEXOR [Concomitant]
  10. STILNOX [Concomitant]
  11. AKINETON [Concomitant]
     Dates: end: 20100913

REACTIONS (2)
  - CONFUSIONAL STATE [None]
  - DISORIENTATION [None]
